FAERS Safety Report 23370096 (Version 1)
Quarter: 2024Q1

REPORT INFORMATION
  Report Type: Spontaneous
  Country: US (occurrence: None)
  Receive Date: 20240104
  Receipt Date: 20240104
  Transmission Date: 20240410
  Serious: Yes (Hospitalization)
  Sender: FDA-Public Use
  Company Number: None

PATIENT
  Sex: Female

DRUGS (3)
  1. TADALAFIL [Suspect]
     Active Substance: TADALAFIL
     Indication: Pulmonary arterial hypertension
     Dosage: 40MG DAILY ORAL
     Route: 048
     Dates: start: 202206
  2. OPSUMIT [Concomitant]
     Active Substance: MACITENTAN
  3. REMODULIN VIDV [Concomitant]

REACTIONS (3)
  - Oedema [None]
  - Haemorrhage [None]
  - Swelling [None]
